FAERS Safety Report 24184451 (Version 1)
Quarter: 2024Q3

REPORT INFORMATION
  Report Type: Spontaneous
  Country: US (occurrence: US)
  Receive Date: 20240807
  Receipt Date: 20240807
  Transmission Date: 20241017
  Serious: No
  Sender: PFIZER
  Company Number: US-PFIZER INC-PV202400101751

PATIENT
  Age: 71 Year
  Sex: Female

DRUGS (3)
  1. TUKYSA [Suspect]
     Active Substance: TUCATINIB
     Dosage: 150MG 2 TABLETS TWICE A DAY
  2. XELODA [Suspect]
     Active Substance: CAPECITABINE
     Dosage: UNK
  3. HERCEPTIN [Suspect]
     Active Substance: TRASTUZUMAB
     Dosage: UNK

REACTIONS (1)
  - Neoplasm recurrence [Unknown]
